FAERS Safety Report 16643780 (Version 1)
Quarter: 2019Q3

REPORT INFORMATION
  Report Type: Spontaneous
  Country: US (occurrence: US)
  Receive Date: 20190729
  Receipt Date: 20190729
  Transmission Date: 20191004
  Serious: No
  Sender: FDA-Public Use
  Company Number: US-PRINSTON PHARMACEUTICAL INC.-2018PRN00395

PATIENT
  Age: 68 Year
  Sex: Female
  Weight: 58.96 kg

DRUGS (6)
  1. CLONAZEPAM. [Suspect]
     Active Substance: CLONAZEPAM
     Dosage: 0.5 MG, UP TO 4X/DAY
     Route: 048
     Dates: start: 20180709, end: 201807
  2. CLONAZEPAM. [Suspect]
     Active Substance: CLONAZEPAM
     Dosage: 0.5 MG, UP TO 4X/DAY
     Route: 048
     Dates: start: 201807
  3. CLONAZEPAM. [Suspect]
     Active Substance: CLONAZEPAM
     Indication: ESSENTIAL TREMOR
     Dosage: UNK
     Route: 048
  4. CLONAZEPAM (TEVA) [Concomitant]
     Indication: ESSENTIAL TREMOR
     Dosage: 1 TABLETS, ONCE
     Dates: start: 20180710, end: 20180710
  5. USV MULTIVITAMIN [Concomitant]
  6. CLONAZEPAM. [Suspect]
     Active Substance: CLONAZEPAM
     Dosage: 0.25 MG, ONCE
     Dates: start: 201807, end: 201807

REACTIONS (17)
  - Burns first degree [Not Recovered/Not Resolved]
  - Anger [Not Recovered/Not Resolved]
  - Performance status decreased [Not Recovered/Not Resolved]
  - Agitation [Not Recovered/Not Resolved]
  - Depressed mood [Not Recovered/Not Resolved]
  - Pruritus [Recovered/Resolved]
  - Feeling abnormal [Not Recovered/Not Resolved]
  - Accident at home [Not Recovered/Not Resolved]
  - Headache [Not Recovered/Not Resolved]
  - Somnolence [Not Recovered/Not Resolved]
  - Dysarthria [Not Recovered/Not Resolved]
  - Mood altered [Not Recovered/Not Resolved]
  - Malaise [Not Recovered/Not Resolved]
  - Product substitution issue [Not Recovered/Not Resolved]
  - Emotional disorder [Not Recovered/Not Resolved]
  - Coordination abnormal [Not Recovered/Not Resolved]
  - Off label use [Not Recovered/Not Resolved]

NARRATIVE: CASE EVENT DATE: 201807
